FAERS Safety Report 8595727-4 (Version None)
Quarter: 2012Q3

REPORT INFORMATION
  Report Type: 
  Country: None (occurrence: None)
  Receive Date: 20120815
  Receipt Date: 20120801
  Transmission Date: 20120928
  Serious: Yes (Hospitalization)
  Sender: FDA-Public Use
  Company Number: US-ROCHE-1095957

PATIENT
  Sex: Female

DRUGS (4)
  1. RIBAVIRIN [Suspect]
     Indication: HEPATITIS C
     Dates: start: 20110916
  2. VICTRELIS [Suspect]
     Indication: HEPATITIS C
     Dates: end: 20120627
  3. RIBAVIRIN [Suspect]
     Dates: end: 20120627
  4. PEGASYS [Suspect]
     Indication: HEPATITIS C
     Dates: start: 20110916, end: 20120627

REACTIONS (8)
  - PERONEAL NERVE PALSY [None]
  - CHOLELITHIASIS [None]
  - ASTHENIA [None]
  - TRANSFUSION [None]
  - WEIGHT DECREASED [None]
  - MYOCARDIAL INFARCTION [None]
  - FEAR [None]
  - BLOOD TEST ABNORMAL [None]
